FAERS Safety Report 4501811-4 (Version None)
Quarter: 2004Q3

REPORT INFORMATION
  Report Type: 
  Country: None (occurrence: None)
  Receive Date: 20040928
  Receipt Date: 20040602
  Transmission Date: 20050211
  Serious: No
  Sender: FDA-Public Use
  Company Number: 04P-163-0262537-00

PATIENT
  Age: 40 Year
  Sex: Female
  Weight: 90.7194 kg

DRUGS (2)
  1. HUMIRA [Suspect]
     Indication: RHEUMATOID ARTHRITIS
     Dosage: 40 MG 1 IN 2 WK SUBCUTANEOUS
     Route: 058
     Dates: start: 20040101, end: 20040501
  2. BLOOD PRESSURE MEDICATION [Concomitant]

REACTIONS (4)
  - DYSGEUSIA [None]
  - ERYTHEMA [None]
  - HEADACHE [None]
  - SOMNOLENCE [None]
